FAERS Safety Report 10052309 (Version 1)
Quarter: 2014Q2

REPORT INFORMATION
  Report Type: Spontaneous
  Country: GR (occurrence: GR)
  Receive Date: 20140402
  Receipt Date: 20140402
  Transmission Date: 20141212
  Serious: Yes (Other)
  Sender: FDA-Public Use
  Company Number: GR-ROXANE LABORATORIES, INC.-2014-RO-00482RO

PATIENT
  Age: 30 Year
  Sex: Female

DRUGS (1)
  1. CLARITHROMYCIN [Suspect]
     Indication: LUNG INFECTION
     Route: 048

REACTIONS (5)
  - Iris atrophy [Not Recovered/Not Resolved]
  - Iritis [Unknown]
  - Vitritis [Unknown]
  - Iris disorder [Unknown]
  - Mydriasis [Unknown]
